FAERS Safety Report 10427023 (Version 1)
Quarter: 2014Q3

REPORT INFORMATION
  Report Type: Spontaneous
  Country: US (occurrence: None)
  Receive Date: 20140902
  Receipt Date: 20140902
  Transmission Date: 20150326
  Serious: Yes (Other)
  Sender: FDA-Public Use
  Company Number: None

PATIENT
  Age: 38 Year
  Sex: Female
  Weight: 64.86 kg

DRUGS (1)
  1. ADDERALL [Suspect]
     Active Substance: AMPHETAMINE ASPARTATE\AMPHETAMINE SULFATE\DEXTROAMPHETAMINE SACCHARATE\DEXTROAMPHETAMINE SULFATE
     Indication: ATTENTION DEFICIT/HYPERACTIVITY DISORDER
     Dosage: 2 IN A.M., 1 IN AFTERNOON, TWICE DAILY, TAKEN BY MOUTH
     Route: 048
     Dates: start: 20140630, end: 20140829

REACTIONS (8)
  - Product quality issue [None]
  - Irritability [None]
  - Somnolence [None]
  - Abdominal discomfort [None]
  - Drug ineffective [None]
  - Ill-defined disorder [None]
  - Headache [None]
  - Product substitution issue [None]

NARRATIVE: CASE EVENT DATE: 20140829
